FAERS Safety Report 25360265 (Version 1)
Quarter: 2025Q2

REPORT INFORMATION
  Report Type: Spontaneous
  Country: US (occurrence: US)
  Receive Date: 20250527
  Receipt Date: 20250527
  Transmission Date: 20250717
  Serious: No
  Sender: ACCORD
  Company Number: US-Accord-434441

PATIENT
  Sex: Female

DRUGS (13)
  1. METHOTREXATE [Suspect]
     Active Substance: METHOTREXATE
     Indication: Product used for unknown indication
  2. PREDNISONE [Concomitant]
     Active Substance: PREDNISONE
  3. GABAPENTIN [Concomitant]
     Active Substance: GABAPENTIN
  4. NAPROXEN [Concomitant]
     Active Substance: NAPROXEN
  5. DULOXETINE HYDROCHLORIDE [Concomitant]
     Active Substance: DULOXETINE HYDROCHLORIDE
  6. ACTEMRA [Concomitant]
     Active Substance: TOCILIZUMAB
  7. PANTOPRAZOLE SODIUM [Concomitant]
     Active Substance: PANTOPRAZOLE SODIUM
  8. CYCLOBENZAPRINE HYDROCHLORIDE [Concomitant]
     Active Substance: CYCLOBENZAPRINE HYDROCHLORIDE
  9. MORPHINE SULFATE [Concomitant]
     Active Substance: MORPHINE SULFATE
  10. LIDOCAINE [Concomitant]
     Active Substance: LIDOCAINE
  11. BETADINE [Concomitant]
     Active Substance: POVIDONE-IODINE
  12. ENBREL [Concomitant]
     Active Substance: ETANERCEPT
  13. LEFLUNOMIDE [Concomitant]
     Active Substance: LEFLUNOMIDE

REACTIONS (1)
  - Drug ineffective [Unknown]
